FAERS Safety Report 5704160-1 (Version None)
Quarter: 2008Q2

REPORT INFORMATION
  Report Type: 
  Country: None (occurrence: None)
  Receive Date: 20080414
  Receipt Date: 20080414
  Transmission Date: 20081010
  Serious: Yes (Hospitalization)
  Sender: FDA-Public Use
  Company Number: None

PATIENT
  Age: 66 Year
  Sex: Female
  Weight: 123 kg

DRUGS (31)
  1. HEPARIN [Suspect]
     Indication: THROMBOSIS PROPHYLAXIS
     Dosage: 5,000 UNITS EVERY 8 HOURS SC
     Route: 058
     Dates: start: 20080217, end: 20080304
  2. HEPARIN [Suspect]
     Indication: ACUTE CORONARY SYNDROME
     Dosage: 1,000 UNITS PER PROTOCOL IV PUSH
     Route: 042
  3. ACETAMINOPHEN [Concomitant]
  4. AMIODARONE [Concomitant]
  5. CALCIUM ACETATE [Concomitant]
  6. CEFEPIME [Concomitant]
  7. CEFTRIAXONE [Concomitant]
  8. CHLORHEXIDINE LIQ [Concomitant]
  9. CIPROFLOXACIN [Concomitant]
  10. DARBEPOETIN ALFA [Concomitant]
  11. DOCUSATE SODIUM [Concomitant]
  12. DUONEB [Concomitant]
  13. ENOXAPARIN SODIUM [Concomitant]
  14. ETOMIDATE [Concomitant]
  15. FENTANYL [Concomitant]
  16. FERROUS SULFATE TAB [Concomitant]
  17. FUROSEMIDE [Concomitant]
  18. INSULIN ISOPHANE [Concomitant]
  19. INSULINE REGULAR [Concomitant]
  20. LIDOCAINE TOPICAL PATCH [Concomitant]
  21. METOLAZONE [Concomitant]
  22. MIDAZOLAM HCL [Concomitant]
  23. NOREPINEPHRINE [Concomitant]
  24. PANTOPRAZOLE SODIUM [Concomitant]
  25. PROPOFOL [Concomitant]
  26. SENNA [Concomitant]
  27. VANCOMYCIN [Concomitant]
  28. HEPARIN [Suspect]
  29. HEPARIN [Suspect]
  30. HEPARIN [Suspect]
  31. HEPARIN [Suspect]

REACTIONS (2)
  - DRUG HYPERSENSITIVITY [None]
  - HEPARIN-INDUCED THROMBOCYTOPENIA [None]
